FAERS Safety Report 25679173 (Version 4)
Quarter: 2025Q4

REPORT INFORMATION
  Report Type: Spontaneous
  Country: US (occurrence: US)
  Receive Date: 20250814
  Receipt Date: 20251124
  Transmission Date: 20260118
  Serious: No
  Sender: SUNOVION
  Company Number: US-SMPA-2025SPA010227

PATIENT
  Age: 73 Year
  Sex: Male

DRUGS (39)
  1. ORGOVYX [Suspect]
     Active Substance: RELUGOLIX
     Indication: Prostate cancer
     Dosage: 360 MG, SINGLE
     Route: 048
  2. ORGOVYX [Suspect]
     Active Substance: RELUGOLIX
     Dosage: 120 MG, QD
     Route: 048
  3. NUBEQA [Suspect]
     Active Substance: DAROLUTAMIDE
     Indication: Product used for unknown indication
  4. ALFUZOSIN HYDROCHLORIDE [Concomitant]
     Active Substance: ALFUZOSIN HYDROCHLORIDE
  5. DIMETHYL SULFONE [Concomitant]
     Active Substance: DIMETHYL SULFONE
  6. FOLIC ACID [Concomitant]
     Active Substance: FOLIC ACID
  7. SENNOSIDES [Concomitant]
     Active Substance: SENNOSIDES
  8. VALACYCLOVIR [Concomitant]
     Active Substance: VALACYCLOVIR HYDROCHLORIDE
  9. CELECOXIB [Concomitant]
     Active Substance: CELECOXIB
  10. FENTANYL [Concomitant]
     Active Substance: FENTANYL
     Route: 062
  11. MELATONIN [Concomitant]
     Active Substance: MELATONIN
  12. METAMUCIL [Concomitant]
     Active Substance: PLANTAGO SEED
  13. VITAMIN C [Concomitant]
     Active Substance: ASCORBIC ACID
  14. QUERCETIN [Concomitant]
     Active Substance: QUERCETIN
  15. CYCLOBENZAPRINE [Concomitant]
     Active Substance: CYCLOBENZAPRINE
  16. Olive leaf [Concomitant]
  17. TEA LEAF [Concomitant]
     Active Substance: TEA LEAF
  18. OXYCODONE HYDROCHLORIDE [Concomitant]
     Active Substance: OXYCODONE HYDROCHLORIDE
  19. SULFAMETHOXAZOLE AND TRIMETHOPRIM [Concomitant]
     Active Substance: SULFAMETHOXAZOLE\TRIMETHOPRIM
  20. TADALAFIL [Concomitant]
     Active Substance: TADALAFIL
  21. TELMISARTAN [Concomitant]
     Active Substance: TELMISARTAN
  22. ADEMETIONINE [Concomitant]
     Active Substance: ADEMETIONINE
  23. Tmg [Concomitant]
  24. Turmeric complex [Concomitant]
  25. Zinc chelated [Concomitant]
  26. FLAXSEED [Concomitant]
     Active Substance: FLAX SEED
  27. COENZYME Q10 [Concomitant]
     Active Substance: DIETARY SUPPLEMENT\UBIDECARENONE
  28. FISH OIL\OMEGA-3 FATTY ACIDS [Concomitant]
     Active Substance: FISH OIL\OMEGA-3 FATTY ACIDS
  29. VITAMIN B12 [Concomitant]
     Active Substance: CYANOCOBALAMIN
  30. VITAMIN D3 [Concomitant]
     Active Substance: CHOLECALCIFEROL
  31. Tocotrienols nos [Concomitant]
  32. Vita e [Concomitant]
  33. Calcium citrate magnesium and zinc with vitamin d3 [Concomitant]
  34. Triple magnesium complex [Concomitant]
  35. NAC [Concomitant]
  36. MAGNESIUM [Concomitant]
     Active Substance: MAGNESIUM
     Dosage: UNK
  37. OMEGA-3 ACIDS [Concomitant]
     Active Substance: OMEGA-3 FATTY ACIDS
     Dosage: UNK
  38. ZINC [Concomitant]
     Active Substance: ZINC
     Dosage: UNK
  39. VITAMIN D [Concomitant]
     Active Substance: VITAMIN D NOS

REACTIONS (19)
  - Malaise [Unknown]
  - Breast discomfort [Unknown]
  - Breast tenderness [Unknown]
  - Muscular weakness [Unknown]
  - Muscle atrophy [Unknown]
  - Drug intolerance [Unknown]
  - Night sweats [Unknown]
  - Asthenia [Unknown]
  - Bone pain [Unknown]
  - Weight increased [Unknown]
  - Myalgia [Unknown]
  - Arthralgia [Unknown]
  - Arthritis [Not Recovered/Not Resolved]
  - Fatigue [Unknown]
  - Hot flush [Unknown]
  - Pain [Unknown]
  - Gait disturbance [Unknown]
  - Central obesity [Unknown]
  - Product dose omission issue [Recovered/Resolved]

NARRATIVE: CASE EVENT DATE: 20250804
